FAERS Safety Report 7685887-1 (Version None)
Quarter: 2011Q3

REPORT INFORMATION
  Report Type: 
  Country: None (occurrence: None)
  Receive Date: 20110816
  Receipt Date: 20110802
  Transmission Date: 20111222
  Serious: Yes (Other)
  Sender: FDA-Public Use
  Company Number: US-ROCHE-760906

PATIENT

DRUGS (2)
  1. PRENATAL VITAMINS [Concomitant]
     Indication: PREGNANCY
     Dosage: FREQUENCY: 1 DAILY
     Route: 064
  2. ISOTRETINOIN [Suspect]
     Indication: ACNE
     Route: 064
     Dates: start: 20080101, end: 20101001

REACTIONS (2)
  - PREGNANCY [None]
  - NO ADVERSE EVENT [None]
